FAERS Safety Report 11774992 (Version 4)
Quarter: 2016Q1

REPORT INFORMATION
  Report Type: Spontaneous
  Country: US (occurrence: US)
  Receive Date: 20151124
  Receipt Date: 20160209
  Transmission Date: 20160525
  Serious: Yes (Other)
  Sender: FDA-Public Use
  Company Number: US-ALLERGAN-1524359US

PATIENT
  Age: 60 Year
  Sex: Female

DRUGS (1)
  1. PRED FORTE [Suspect]
     Active Substance: PREDNISOLONE ACETATE
     Indication: CORNEAL TRANSPLANT
     Dosage: 1 GTT, QID
     Route: 047
     Dates: start: 1986

REACTIONS (5)
  - Transplant dysfunction [Unknown]
  - Cataract [Recovering/Resolving]
  - Injury corneal [Unknown]
  - Syncope [Unknown]
  - Road traffic accident [Unknown]

NARRATIVE: CASE EVENT DATE: 201109
